FAERS Safety Report 6098277-2 (Version None)
Quarter: 2009Q1

REPORT INFORMATION
  Report Type: 
  Country: None (occurrence: None)
  Receive Date: 20090227
  Receipt Date: 20090219
  Transmission Date: 20090719
  Serious: Yes (Other)
  Sender: FDA-Public Use
  Company Number: US-ABBOTT-09P-163-0558245-00

PATIENT
  Sex: Male

DRUGS (3)
  1. HUMIRA [Suspect]
     Indication: PSORIATIC ARTHROPATHY
     Route: 058
     Dates: start: 20070101, end: 20081101
  2. ZIAC [Concomitant]
     Indication: HYPERTENSION
     Route: 048
  3. DICLOFENAC [Concomitant]
     Indication: ARTHRITIS
     Route: 048

REACTIONS (2)
  - MALIGNANT MELANOMA [None]
  - SARCOIDOSIS [None]
